FAERS Safety Report 16051181 (Version 1)
Quarter: 2019Q2

REPORT INFORMATION
  Report Type: Spontaneous
  Country: US (occurrence: US)
  Receive Date: 20190307
  Receipt Date: 20190307
  Transmission Date: 20190711
  Serious: Yes (Other)
  Sender: FDA-Public Use
  Company Number: None

PATIENT
  Age: 68 Year
  Sex: Female
  Weight: 61.65 kg

DRUGS (1)
  1. MUPIROCIN OINTMENT USP,2/% [Suspect]
     Active Substance: MUPIROCIN
     Indication: SKIN DISORDER
     Route: 061
     Dates: start: 20190206, end: 20190211

REACTIONS (3)
  - Rash [None]
  - Hyperkeratosis [None]
  - Rash papular [None]

NARRATIVE: CASE EVENT DATE: 20190210
